FAERS Safety Report 4745992-6 (Version None)
Quarter: 2005Q3

REPORT INFORMATION
  Report Type: 
  Country: None (occurrence: None)
  Receive Date: 20050816
  Receipt Date: 20050805
  Transmission Date: 20060218
  Serious: Yes (Hospitalization)
  Sender: FDA-Public Use
  Company Number: GB-MERCK-0508GBR00047

PATIENT
  Age: 75 Year
  Sex: Male

DRUGS (4)
  1. ZOCOR [Suspect]
     Indication: BLOOD CHOLESTEROL INCREASED
     Route: 048
     Dates: end: 20050709
  2. PROSCAR [Concomitant]
     Route: 048
  3. ASPIRIN [Concomitant]
     Route: 048
     Dates: end: 20050709
  4. HYPROMELLOSE [Concomitant]
     Route: 047

REACTIONS (4)
  - HAEMATEMESIS [None]
  - HEPATIC STEATOSIS [None]
  - HEPATITIS [None]
  - VOMITING [None]
